FAERS Safety Report 19267318 (Version 2)
Quarter: 2021Q3

REPORT INFORMATION
  Report Type: Spontaneous
  Country: FR (occurrence: FR)
  Receive Date: 20210518
  Receipt Date: 20210809
  Transmission Date: 20211014
  Serious: Yes (Death, Hospitalization, Other)
  Sender: FDA-Public Use
  Company Number: FR-INDIVIOR EUROPE LIMITED-INDV-129653-2021

PATIENT

DRUGS (1)
  1. SUBUTEX [Suspect]
     Active Substance: BUPRENORPHINE HYDROCHLORIDE
     Indication: PRODUCT USED FOR UNKNOWN INDICATION
     Dosage: UNK
     Route: 042
     Dates: start: 2021

REACTIONS (5)
  - Organ failure [Fatal]
  - Septic embolus [Fatal]
  - Intentional product misuse [Fatal]
  - Endocarditis [Fatal]
  - Septic shock [Fatal]

NARRATIVE: CASE EVENT DATE: 2021
